FAERS Safety Report 9832021 (Version 1)
Quarter: 2014Q1

REPORT INFORMATION
  Report Type: Report from Study
  Country: US (occurrence: US)
  Receive Date: 20140121
  Receipt Date: 20140121
  Transmission Date: 20141002
  Serious: Yes (Hospitalization)
  Sender: FDA-Public Use
  Company Number: PHEH2014US001331

PATIENT
  Age: 27 Year
  Sex: Female

DRUGS (11)
  1. TOBI [Suspect]
     Indication: CYSTIC FIBROSIS
     Dosage: 300 MG, BID
     Dates: end: 20140113
  2. CAYSTON [Concomitant]
     Dosage: UNK
  3. PULMOZYME [Concomitant]
     Dosage: UNK
  4. ZENPEP [Concomitant]
     Dosage: UNK
  5. XOPENEX [Concomitant]
     Dosage: UNK
  6. SIMBICORT TURBUHALER [Concomitant]
     Dosage: UNK =
  7. FLONASE [Concomitant]
     Dosage: UNK =
  8. AZITHROMYCIN [Concomitant]
     Dosage: UNK
  9. CLARITIN [Concomitant]
     Dosage: UNK
  10. MIRALAX [Concomitant]
     Dosage: UNK
  11. REGLAN [Concomitant]
     Dosage: UNK

REACTIONS (2)
  - Staphylococcal infection [Recovering/Resolving]
  - Influenza [Recovering/Resolving]
